FAERS Safety Report 6165668-0 (Version None)
Quarter: 2009Q2

REPORT INFORMATION
  Report Type: 
  Country: None (occurrence: None)
  Receive Date: 20090423
  Receipt Date: 20090414
  Transmission Date: 20091009
  Serious: Yes (Other)
  Sender: FDA-Public Use
  Company Number: GB-GENENTECH-281379

PATIENT
  Sex: Female

DRUGS (4)
  1. RITUXIMAB [Suspect]
     Indication: DRUG USE FOR UNKNOWN INDICATION
     Route: 065
  2. INFLIXIMAB [Concomitant]
     Indication: DRUG USE FOR UNKNOWN INDICATION
  3. ETANERCEPT [Concomitant]
     Indication: DRUG USE FOR UNKNOWN INDICATION
  4. ADALIMUMAB [Concomitant]
     Indication: DRUG USE FOR UNKNOWN INDICATION

REACTIONS (1)
  - CHRONIC MYELOID LEUKAEMIA [None]
